FAERS Safety Report 19467707 (Version 1)
Quarter: 2021Q2

REPORT INFORMATION
  Report Type: Spontaneous
  Country: US (occurrence: US)
  Receive Date: 20210628
  Receipt Date: 20210628
  Transmission Date: 20210717
  Serious: No
  Sender: FDA-Public Use
  Company Number: None

PATIENT
  Age: 36 Year
  Sex: Male
  Weight: 83.91 kg

DRUGS (1)
  1. TALTZ [Suspect]
     Active Substance: IXEKIZUMAB
     Indication: PSORIASIS
     Dosage: INJECTE 80MG (1 SYRINGE) SUBCUTANEOUSLY EVERY 2WEEKS FOR  4?12 WEEKS AS DIRECTED???INTERRUPTED
     Route: 058
     Dates: start: 202101

REACTIONS (1)
  - Herpes zoster [None]
